FAERS Safety Report 23917706 (Version 1)
Quarter: 2024Q2

REPORT INFORMATION
  Report Type: Spontaneous
  Country: FR (occurrence: FR)
  Receive Date: 20240530
  Receipt Date: 20240530
  Transmission Date: 20240716
  Serious: Yes (Hospitalization, Other)
  Sender: FDA-Public Use
  Company Number: None

PATIENT
  Age: 37 Year
  Sex: Male

DRUGS (4)
  1. OLANZAPINE [Suspect]
     Active Substance: OLANZAPINE
     Indication: Schizophrenia
     Dates: start: 2018, end: 201905
  2. OLANZAPINE [Suspect]
     Active Substance: OLANZAPINE
     Indication: Schizophrenia
     Dosage: DAILY DOSE: 10 MILLIGRAM
     Route: 048
     Dates: start: 201909
  3. SERTRALINE [Suspect]
     Active Substance: SERTRALINE HYDROCHLORIDE
     Indication: Depression
     Dosage: DAILY DOSE: 150 MILLIGRAM
     Route: 048
     Dates: start: 201910
  4. VALPROATE SODIUM [Concomitant]
     Active Substance: VALPROATE SODIUM
     Indication: Epilepsy
     Dosage: SUSTAINED RELEASE GRANULES? SACHET-DOSE?DAILY DOSE: 1000 MILLIGRAM
     Route: 048
     Dates: start: 202212

REACTIONS (2)
  - Compulsive shopping [Not Recovered/Not Resolved]
  - Rebound psychosis [Unknown]

NARRATIVE: CASE EVENT DATE: 20190101
